FAERS Safety Report 6382852-1 (Version None)
Quarter: 2009Q3

REPORT INFORMATION
  Report Type: 
  Country: None (occurrence: None)
  Receive Date: 20090928
  Receipt Date: 20090928
  Transmission Date: 20100115
  Serious: Yes (Hospitalization)
  Sender: FDA-Public Use
  Company Number: None

PATIENT
  Age: 73 Year
  Sex: Male
  Weight: 88.13 kg

DRUGS (2)
  1. VANCOMYCIN INTAVENOUS 1500 MG IN 0.9% SODIUM CHLORIDE [Suspect]
     Indication: MASTOIDITIS
     Dosage: INTRAVENOUS
     Route: 042
  2. VANCOMYCIN INTAVENOUS 1500 MG IN 0.9% SODIUM CHLORIDE [Suspect]
     Indication: OTITIS MEDIA
     Dosage: INTRAVENOUS
     Route: 042

REACTIONS (2)
  - DRUG TOXICITY [None]
  - RENAL FAILURE ACUTE [None]
